FAERS Safety Report 8589019-7 (Version None)
Quarter: 2012Q3

REPORT INFORMATION
  Report Type: 
  Country: None (occurrence: None)
  Receive Date: 20120813
  Receipt Date: 20120808
  Transmission Date: 20120928
  Serious: Yes (Other)
  Sender: FDA-Public Use
  Company Number: US-AMGEN-USASP2012049955

PATIENT
  Sex: Male

DRUGS (1)
  1. ENBREL [Suspect]
     Dosage: UNK UNK, QWK
     Route: 064
     Dates: start: 20060701, end: 20110201

REACTIONS (2)
  - UMBILICAL CORD AROUND NECK [None]
  - HEART RATE INCREASED [None]
